FAERS Safety Report 6014143-2 (Version None)
Quarter: 2008Q4

REPORT INFORMATION
  Report Type: 
  Country: None (occurrence: None)
  Receive Date: 20081219
  Receipt Date: 20080125
  Transmission Date: 20090506
  Serious: No
  Sender: FDA-Public Use
  Company Number: A0702458A

PATIENT
  Age: 62 Year
  Sex: Male

DRUGS (4)
  1. AVODART [Suspect]
     Route: 048
  2. NASAL INHALER(TYPE NOT SPECIFIED) [Concomitant]
  3. SINGULAIR [Concomitant]
  4. UROXATRAL [Concomitant]

REACTIONS (2)
  - MEDICATION RESIDUE [None]
  - PRODUCT QUALITY ISSUE [None]
